FAERS Safety Report 6146997-3 (Version None)
Quarter: 2009Q2

REPORT INFORMATION
  Report Type: 
  Country: None (occurrence: None)
  Receive Date: 20090407
  Receipt Date: 20090330
  Transmission Date: 20091009
  Serious: Yes (Hospitalization)
  Sender: FDA-Public Use
  Company Number: US-GENENTECH-280250

PATIENT
  Sex: Female
  Weight: 75.5 kg

DRUGS (11)
  1. RANIBIZUMAB [Suspect]
     Indication: RETINAL VEIN OCCLUSION
     Dosage: 5 MG, PRN
     Route: 031
     Dates: start: 20090123
  2. PROTONIX [Concomitant]
     Indication: OESOPHAGEAL ULCER
     Dosage: UNK
     Dates: start: 20060101
  3. VOLTAREN [Concomitant]
     Indication: ARTHRITIS
     Dosage: UNK
     Dates: start: 20000101
  4. TOPAMAX [Concomitant]
     Indication: MIGRAINE
     Dosage: UNK
     Dates: start: 20060101
  5. SINGULAIR [Concomitant]
     Indication: CHRONIC OBSTRUCTIVE PULMONARY DISEASE
     Dosage: UNK
     Dates: start: 19980101
  6. CLONAZEPAM [Concomitant]
     Indication: FIBROMYALGIA
     Dosage: UNK
     Dates: start: 20071101
  7. ALBUTEROL [Concomitant]
     Indication: CHRONIC OBSTRUCTIVE PULMONARY DISEASE
     Dosage: UNK
     Dates: start: 20070101
  8. CYMBALTA [Concomitant]
     Indication: ANXIETY
     Dosage: UNK
     Dates: start: 20080901
  9. BUSPAR [Concomitant]
     Indication: ANXIETY
     Dosage: UNK
     Dates: start: 20081121
  10. ZETIA [Concomitant]
     Indication: HYPERLIPIDAEMIA
     Dosage: UNK
     Dates: start: 20090601
  11. MISOPROSTOL [Concomitant]
     Indication: OESOPHAGEAL ULCER
     Dosage: UNK
     Dates: start: 20060101

REACTIONS (1)
  - ACUTE CORONARY SYNDROME [None]
